FAERS Safety Report 5578670-4 (Version None)
Quarter: 2007Q4

REPORT INFORMATION
  Report Type: 
  Country: None (occurrence: None)
  Receive Date: 20071227
  Receipt Date: 20071227
  Transmission Date: 20080405
  Serious: No
  Sender: FDA-Public Use
  Company Number: None

PATIENT
  Age: 39 Year
  Sex: Female
  Weight: 52.1637 kg

DRUGS (1)
  1. TOPAMAX [Suspect]
     Indication: MIGRAINE PROPHYLAXIS
     Dosage: 25 MG 1X DAILY MOUTH AFTER 1 WK 50 MG PER DAY
     Route: 048
     Dates: start: 20071128, end: 20071205

REACTIONS (2)
  - ANGLE CLOSURE GLAUCOMA [None]
  - VISION BLURRED [None]
